FAERS Safety Report 10990844 (Version 1)
Quarter: 2015Q2

REPORT INFORMATION
  Report Type: Spontaneous
  Country: US (occurrence: US)
  Receive Date: 20150406
  Receipt Date: 20150406
  Transmission Date: 20150821
  Serious: Yes (Other)
  Sender: FDA-Public Use
  Company Number: US-PFIZER INC-2015110980

PATIENT
  Age: 98 Year
  Sex: Female

DRUGS (1)
  1. LIPITOR [Suspect]
     Active Substance: ATORVASTATIN CALCIUM
     Dosage: 80 MG, UNK

REACTIONS (4)
  - Hallucination [Unknown]
  - Insomnia [Unknown]
  - Lack of spontaneous speech [Unknown]
  - Hepatic enzyme abnormal [Unknown]
